FAERS Safety Report 9301370 (Version 8)
Quarter: 2024Q3

REPORT INFORMATION
  Report Type: Report from Study
  Country: FR (occurrence: FR)
  Receive Date: 20130521
  Receipt Date: 20240824
  Transmission Date: 20241016
  Serious: Yes (Hospitalization)
  Sender: TAKEDA
  Company Number: FR-SHIRE-SPV1-2009-00649

PATIENT
  Age: 9 Year
  Sex: Male
  Weight: 32 kg

DRUGS (88)
  1. IDURSULFASE [Suspect]
     Active Substance: IDURSULFASE
     Indication: Mucopolysaccharidosis II
     Dosage: 18 MILLIGRAM, 1/WEEK
     Route: 041
     Dates: start: 20061228
  2. IDURSULFASE [Suspect]
     Active Substance: IDURSULFASE
     Dosage: 0.56 MILLIGRAM/KILOGRAM, 1/WEEK
     Route: 042
     Dates: start: 20061228, end: 20080820
  3. IDURSULFASE [Suspect]
     Active Substance: IDURSULFASE
     Dosage: 0.58 MILLIGRAM/KILOGRAM, 1/WEEK
     Route: 042
     Dates: start: 20070104
  4. IDURSULFASE [Suspect]
     Active Substance: IDURSULFASE
     Dosage: 0.56 MILLIGRAM/KILOGRAM, 1/WEEK
     Route: 042
     Dates: start: 20070118
  5. IDURSULFASE [Suspect]
     Active Substance: IDURSULFASE
     Dosage: 0.58 MILLIGRAM/KILOGRAM, 1/WEEK
     Route: 042
     Dates: start: 20070201
  6. IDURSULFASE [Suspect]
     Active Substance: IDURSULFASE
     Dosage: 0.75 MILLIGRAM/KILOGRAM, Q2WEEKS
     Route: 042
     Dates: start: 20150617
  7. IDURSULFASE [Suspect]
     Active Substance: IDURSULFASE
     Dosage: 1 MILLIGRAM/KILOGRAM, 1/WEEK
     Route: 042
     Dates: start: 20100210, end: 20150616
  8. IDURSULFASE [Suspect]
     Active Substance: IDURSULFASE
     Dosage: 1 MILLIGRAM/KILOGRAM, 1/WEEK
     Route: 042
     Dates: start: 20080919, end: 20150616
  9. IDURSULFASE [Suspect]
     Active Substance: IDURSULFASE
     Dosage: 0.75 MILLIGRAM/KILOGRAM, ONCE IN 2 WEEKS
     Route: 042
     Dates: start: 20150617
  10. SERETIDE [Concomitant]
     Active Substance: FLUTICASONE PROPIONATE\SALMETEROL XINAFOATE
     Indication: Respiratory disorder
     Dosage: 2 DOSAGE FORM, BID
     Dates: start: 20060918
  11. SERETIDE [Concomitant]
     Active Substance: FLUTICASONE PROPIONATE\SALMETEROL XINAFOATE
     Dosage: UNK
     Route: 055
     Dates: start: 2006, end: 2013
  12. ALBUTEROL [Concomitant]
     Active Substance: ALBUTEROL
     Indication: Respiratory disorder
     Dosage: 1 DOSAGE FORM, BID
     Route: 048
     Dates: start: 20060918
  13. ALBUTEROL [Concomitant]
     Active Substance: ALBUTEROL
     Indication: Asthma
     Dosage: UNK
     Route: 048
     Dates: start: 2015
  14. ALBUTEROL [Concomitant]
     Active Substance: ALBUTEROL
     Dosage: UNK
     Route: 055
     Dates: start: 201302, end: 201302
  15. ALBUTEROL [Concomitant]
     Active Substance: ALBUTEROL
     Dosage: UNK
     Route: 048
     Dates: start: 2006
  16. ALBUTEROL [Concomitant]
     Active Substance: ALBUTEROL
     Dosage: UNK
     Route: 055
     Dates: start: 20130521, end: 20140123
  17. AMITRIPTYLINE HYDROCHLORIDE [Concomitant]
     Active Substance: AMITRIPTYLINE HYDROCHLORIDE
     Indication: Neuralgia
     Dosage: 15 DOSAGE FORM, BID
     Route: 048
     Dates: start: 20060918
  18. AMITRIPTYLINE HYDROCHLORIDE [Concomitant]
     Active Substance: AMITRIPTYLINE HYDROCHLORIDE
     Dosage: UNK
     Route: 048
     Dates: start: 2006
  19. IBUPROFEN [Concomitant]
     Active Substance: IBUPROFEN
     Indication: Pain
     Dosage: UNK, QD
     Route: 048
     Dates: start: 20060918
  20. IBUPROFEN [Concomitant]
     Active Substance: IBUPROFEN
     Dosage: UNK
     Route: 065
     Dates: start: 2005
  21. IBUPROFEN [Concomitant]
     Active Substance: IBUPROFEN
     Dosage: UNK
     Route: 048
     Dates: start: 2006
  22. CYAMEMAZINE [Concomitant]
     Active Substance: CYAMEMAZINE
     Indication: Agitation
     Dosage: 15 DOSAGE FORM, QD
     Route: 048
     Dates: start: 20060918
  23. CYAMEMAZINE [Concomitant]
     Active Substance: CYAMEMAZINE
     Indication: Insomnia
     Dosage: UNK
     Route: 048
     Dates: start: 2006
  24. CYAMEMAZINE [Concomitant]
     Active Substance: CYAMEMAZINE
     Dosage: UNK
     Route: 048
     Dates: end: 20130918
  25. CARBAMAZEPINE [Concomitant]
     Active Substance: CARBAMAZEPINE
     Indication: Neuralgia
     Dosage: 500 MILLIGRAM, QD
     Route: 048
     Dates: start: 20060918
  26. CARBAMAZEPINE [Concomitant]
     Active Substance: CARBAMAZEPINE
     Dosage: UNK
     Route: 048
     Dates: start: 2006
  27. RISPERDAL [Concomitant]
     Active Substance: RISPERIDONE
     Indication: Agitation
     Dosage: 2 MILLIGRAM, QD
     Route: 048
     Dates: start: 20081205
  28. RISPERDAL [Concomitant]
     Active Substance: RISPERIDONE
     Dosage: UNK
     Route: 048
     Dates: start: 20081205, end: 20150212
  29. RISPERDAL [Concomitant]
     Active Substance: RISPERIDONE
     Dosage: UNK
     Route: 048
     Dates: end: 20150228
  30. ACETAMINOPHEN\CODEINE PHOSPHATE [Concomitant]
     Active Substance: ACETAMINOPHEN\CODEINE PHOSPHATE
     Indication: Agitation
     Dosage: 3 DOSAGE FORM, QD
     Route: 048
     Dates: start: 20081205
  31. ACETAMINOPHEN\CODEINE PHOSPHATE [Concomitant]
     Active Substance: ACETAMINOPHEN\CODEINE PHOSPHATE
     Dosage: UNK
     Route: 048
     Dates: start: 20081205
  32. ATARAX                             /00058401/ [Concomitant]
     Indication: Premedication
     Dosage: 15 MILLIGRAM, 1/WEEK
     Route: 065
     Dates: start: 20061228
  33. UNSPECIFIED INGREDIENT [Concomitant]
     Active Substance: UNSPECIFIED INGREDIENT
     Indication: Premedication
     Dosage: UNK UNK, 1X/WEEK
     Route: 042
     Dates: start: 20061228
  34. METHYLPREDNISOLONE [Concomitant]
     Active Substance: METHYLPREDNISOLONE
     Indication: Asthma
     Dosage: UNK
     Route: 048
     Dates: start: 20141216
  35. METHYLPREDNISOLONE [Concomitant]
     Active Substance: METHYLPREDNISOLONE
     Indication: Nasal congestion
     Dosage: UNK
     Route: 048
     Dates: start: 201408, end: 201408
  36. METHYLPREDNISOLONE [Concomitant]
     Active Substance: METHYLPREDNISOLONE
     Indication: Pyrexia
     Dosage: UNK
     Route: 048
     Dates: start: 201302, end: 201302
  37. AMOXICILLIN SODIUM [Concomitant]
     Active Substance: AMOXICILLIN SODIUM
     Indication: Otorrhoea
     Dosage: UNK
     Route: 048
     Dates: start: 2012, end: 2012
  38. PERICIAZINE [Concomitant]
     Active Substance: PERICIAZINE
     Indication: Agitation
     Dosage: UNK
     Route: 048
     Dates: start: 200808, end: 200901
  39. ALBUTEROL SULFATE [Concomitant]
     Active Substance: ALBUTEROL SULFATE
     Indication: Asthma
     Dosage: UNK
     Route: 048
     Dates: start: 20131104, end: 2015
  40. ALBUTEROL SULFATE [Concomitant]
     Active Substance: ALBUTEROL SULFATE
     Dosage: UNK
     Route: 055
     Dates: start: 201302, end: 201302
  41. SACCHAROMYCES CEREVISIAE [Concomitant]
     Active Substance: SACCHAROMYCES CEREVISIAE
     Indication: Functional gastrointestinal disorder
     Dosage: UNK
     Route: 048
     Dates: start: 20131104
  42. NITRAZEPAM [Concomitant]
     Active Substance: NITRAZEPAM
     Indication: Insomnia
     Dosage: UNK
     Route: 048
     Dates: start: 20150212, end: 201503
  43. TETRABENAZINE [Concomitant]
     Active Substance: TETRABENAZINE
     Indication: Dyskinesia
     Dosage: UNK
     Route: 048
     Dates: start: 20150423
  44. CLINUTREN FRUIT [Concomitant]
     Indication: Nutritional supplementation
     Dosage: UNK
     Route: 048
     Dates: start: 201505, end: 201506
  45. DOLIPRANE [Concomitant]
     Active Substance: ACETAMINOPHEN
     Indication: Pain
     Dosage: UNK
     Route: 048
  46. ZITHROMAX [Concomitant]
     Active Substance: AZITHROMYCIN DIHYDRATE
     Indication: Lower respiratory tract congestion
     Dosage: UNK
     Route: 048
     Dates: start: 201503
  47. ZITHROMAX [Concomitant]
     Active Substance: AZITHROMYCIN DIHYDRATE
     Indication: Asthma
     Dosage: UNK
     Route: 048
     Dates: start: 20150212, end: 20150221
  48. ZITHROMAX [Concomitant]
     Active Substance: AZITHROMYCIN DIHYDRATE
     Dosage: UNK
     Route: 048
     Dates: start: 20130412, end: 20130417
  49. AMOXICILLIN\CLAVULANIC ACID [Concomitant]
     Active Substance: AMOXICILLIN\CLAVULANIC ACID
     Indication: Pneumonia aspiration
     Dosage: UNK
     Route: 048
     Dates: start: 20150306, end: 20150321
  50. AMOXICILLIN\CLAVULANIC ACID [Concomitant]
     Active Substance: AMOXICILLIN\CLAVULANIC ACID
     Indication: Lower respiratory tract congestion
     Dosage: UNK
     Route: 048
     Dates: start: 20130521, end: 2013
  51. AMOXICILLIN\CLAVULANIC ACID [Concomitant]
     Active Substance: AMOXICILLIN\CLAVULANIC ACID
     Indication: Lung disorder
     Dosage: UNK
     Route: 048
     Dates: start: 20131104, end: 20131114
  52. AMOXICILLIN\CLAVULANIC ACID [Concomitant]
     Active Substance: AMOXICILLIN\CLAVULANIC ACID
     Dosage: UNK
     Route: 048
     Dates: start: 20130412, end: 20130417
  53. AMOXICILLIN\CLAVULANIC ACID [Concomitant]
     Active Substance: AMOXICILLIN\CLAVULANIC ACID
     Dosage: UNK
     Route: 048
     Dates: start: 20141216, end: 20150212
  54. SODIUM CHLORIDE [Concomitant]
     Active Substance: SODIUM CHLORIDE
     Indication: Otorrhoea
     Dosage: UNK
     Route: 050
     Dates: start: 20130311, end: 2013
  55. CEFIXIME [Concomitant]
     Active Substance: CEFIXIME
     Indication: Respiratory disorder
     Dosage: UNK
     Route: 048
     Dates: start: 201408, end: 201408
  56. CEFIXIME [Concomitant]
     Active Substance: CEFIXIME
     Indication: Otorrhoea
     Dosage: UNK
     Route: 048
     Dates: start: 2012, end: 2012
  57. BACTRIM [Concomitant]
     Active Substance: SULFAMETHOXAZOLE\TRIMETHOPRIM
     Indication: Lung disorder
     Dosage: UNK
     Route: 048
     Dates: start: 20131101, end: 20131114
  58. BACTRIM [Concomitant]
     Active Substance: SULFAMETHOXAZOLE\TRIMETHOPRIM
     Indication: Lower respiratory tract congestion
     Dosage: UNK
     Route: 048
     Dates: start: 20141216, end: 20150212
  59. RIFAMPIN [Concomitant]
     Active Substance: RIFAMPIN
     Indication: Sepsis
     Dosage: UNK
     Route: 048
     Dates: start: 20150327, end: 20150512
  60. MELATONIN [Concomitant]
     Active Substance: MELATONIN
     Indication: Insomnia
     Dosage: UNK
     Route: 048
     Dates: start: 20140304
  61. CEFUROXIME [Concomitant]
     Active Substance: CEFUROXIME
     Indication: Lower respiratory tract congestion
     Dosage: UNK
     Route: 048
     Dates: start: 20141216, end: 20150212
  62. CEFUROXIME [Concomitant]
     Active Substance: CEFUROXIME
     Indication: Lung disorder
     Dosage: UNK
     Route: 048
     Dates: start: 20131104, end: 20131114
  63. POLYETHYLENE GLYCOL 4000 [Concomitant]
     Active Substance: POLYETHYLENE GLYCOL 4000
     Indication: Constipation
     Dosage: UNK
     Route: 048
     Dates: start: 20130513
  64. TRAMADOL HYDROCHLORIDE [Concomitant]
     Active Substance: TRAMADOL HYDROCHLORIDE
     Indication: Pain
     Dosage: UNK
     Route: 048
     Dates: start: 20150327, end: 201506
  65. VITAMIN D [Concomitant]
     Active Substance: VITAMIN D NOS
     Indication: Vitamin D deficiency
     Dosage: UNK
     Route: 048
     Dates: start: 20140123, end: 2014
  66. INFLUENZA VIRUS VACCINE [Concomitant]
     Active Substance: INFLUENZA VIRUS VACCINE
     Indication: Antiviral prophylaxis
     Dosage: UNK
     Route: 030
     Dates: start: 20140123, end: 20140123
  67. EFFERALGAN [Concomitant]
     Active Substance: ACETAMINOPHEN
     Indication: Pain
     Dosage: UNK
     Route: 048
     Dates: end: 2013
  68. BISEPTINE [BENZALKONIUM CHLORIDE;BENZYL ALCOHOL;CHLORHEXIDINE] [Concomitant]
     Indication: Inflammation
     Dosage: UNK
     Route: 061
     Dates: start: 20160527, end: 20160605
  69. LINOLEIC ACID COMP [ETHYL LINOLEATE;PYRIDOXINE HYDROCHLORIDE;TOCOPHERO [Concomitant]
     Indication: Decubitus ulcer
     Dosage: UNK
     Route: 061
     Dates: start: 2013, end: 2013
  70. GLYCERIN [Concomitant]
     Active Substance: GLYCERIN
     Indication: Constipation
     Dosage: UNK
     Route: 054
     Dates: start: 20130513, end: 2013
  71. MORPHINE [Concomitant]
     Active Substance: MORPHINE
     Indication: Pain
     Dosage: UNK
     Route: 065
     Dates: start: 20150427, end: 20150427
  72. NASONEX [Concomitant]
     Active Substance: MOMETASONE FUROATE
     Indication: Lower respiratory tract congestion
     Dosage: UNK
     Route: 055
     Dates: start: 20131104, end: 20131204
  73. ATARAX [Concomitant]
     Active Substance: HYDROXYZINE HYDROCHLORIDE
     Indication: Agitation
     Dosage: UNK
     Route: 048
     Dates: start: 20150327
  74. ACETAMINOPHEN\CODEINE PHOSPHATE [Concomitant]
     Active Substance: ACETAMINOPHEN\CODEINE PHOSPHATE
     Indication: Pain
     Dosage: UNK
     Route: 048
     Dates: start: 201204, end: 201501
  75. CHOLECALCIFEROL [Concomitant]
     Active Substance: CHOLECALCIFEROL
     Indication: Vitamin D deficiency
     Dosage: UNK
     Route: 048
     Dates: start: 20150212, end: 201508
  76. LINEZOLID [Concomitant]
     Active Substance: LINEZOLID
     Indication: Sepsis
     Dosage: UNK
     Route: 048
     Dates: start: 20150327, end: 20150427
  77. ESOMEPRAZOLE MAGNESIUM [Concomitant]
     Active Substance: ESOMEPRAZOLE MAGNESIUM
     Indication: Gastrooesophageal reflux disease
     Dosage: UNK
     Route: 048
     Dates: start: 201112
  78. CAPTOPRIL [Concomitant]
     Active Substance: CAPTOPRIL
     Indication: Cardiac valve disease
     Dosage: UNK
     Route: 048
     Dates: start: 201101, end: 20130313
  79. CAPTOPRIL [Concomitant]
     Active Substance: CAPTOPRIL
     Dosage: UNK
     Route: 048
     Dates: start: 201305
  80. FLUTICASONE PROPIONATE [Concomitant]
     Active Substance: FLUTICASONE PROPIONATE
     Indication: Asthma
     Dosage: UNK
     Route: 055
     Dates: start: 20130412, end: 2013
  81. FLUTICASONE PROPIONATE [Concomitant]
     Active Substance: FLUTICASONE PROPIONATE
     Dosage: UNK
     Route: 055
     Dates: start: 20140123
  82. PREGABALIN [Concomitant]
     Active Substance: PREGABALIN
     Indication: Dyskinesia
     Dosage: UNK
     Route: 048
     Dates: start: 201506
  83. MEDICAL FOOD [Concomitant]
     Active Substance: MEDICAL FOOD
     Indication: Malnutrition
     Dosage: UNK
     Route: 050
     Dates: start: 20150608
  84. NITROUS OXIDE [Concomitant]
     Active Substance: NITROUS OXIDE
     Indication: Pain
     Dosage: UNK
     Route: 048
     Dates: start: 20061228
  85. OFLOXACIN [Concomitant]
     Active Substance: OFLOXACIN
     Indication: Otorrhoea
     Dosage: UNK
     Route: 050
     Dates: start: 2012, end: 2012
  86. BETADINE [Concomitant]
     Active Substance: POVIDONE-IODINE
     Indication: Otorrhoea
     Dosage: UNK
     Route: 050
     Dates: start: 20130311, end: 2013
  87. DIPROSONE [Concomitant]
     Active Substance: BETAMETHASONE DIPROPIONATE
     Indication: Inflammation
     Dosage: UNK
     Route: 061
     Dates: start: 20160527, end: 20160605
  88. TEGRETOL [Concomitant]
     Active Substance: CARBAMAZEPINE
     Indication: Seizure
     Dosage: UNK
     Route: 048
     Dates: start: 2013

REACTIONS (4)
  - Lung disorder [Recovered/Resolved]
  - Nasopharyngitis [Recovered/Resolved]
  - Tachypnoea [Recovered/Resolved]
  - Asthma [Recovered/Resolved]

NARRATIVE: CASE EVENT DATE: 20070516
